FAERS Safety Report 6035723-4 (Version None)
Quarter: 2009Q1

REPORT INFORMATION
  Report Type: 
  Country: None (occurrence: None)
  Receive Date: 20090113
  Receipt Date: 20090107
  Transmission Date: 20090719
  Serious: Yes (Death, Other)
  Sender: FDA-Public Use
  Company Number: PHHO2007MX13826

PATIENT
  Sex: Male

DRUGS (1)
  1. DIOVAN HCT [Suspect]
     Indication: HYPERTENSION
     Dosage: 160/12.5MG /DAILY
     Route: 048
     Dates: start: 19980101

REACTIONS (10)
  - ARTHRITIS [None]
  - CARDIAC FAILURE [None]
  - CARDIAC PACEMAKER INSERTION [None]
  - DEPRESSION [None]
  - HAEMODIALYSIS [None]
  - MULTI-ORGAN FAILURE [None]
  - MUSCULOSKELETAL PAIN [None]
  - RENAL FAILURE [None]
  - SEPSIS [None]
  - VIRAL INFECTION [None]
